FAERS Safety Report 15284956 (Version 1)
Quarter: 2018Q3

REPORT INFORMATION
  Report Type: Spontaneous
  Country: US (occurrence: US)
  Receive Date: 20180816
  Receipt Date: 20180816
  Transmission Date: 20181010
  Serious: Yes (Other)
  Sender: FDA-Public Use
  Company Number: US-TEVA-2018-US-942576

PATIENT
  Age: 68 Year
  Sex: Male

DRUGS (12)
  1. SAW PALMETTO [Concomitant]
     Active Substance: HERBALS\SAW PALMETTO
  2. IRON [Concomitant]
     Active Substance: IRON
  3. FINASTERIDE. [Concomitant]
     Active Substance: FINASTERIDE
  4. VITAMIN B12 [Concomitant]
     Active Substance: CYANOCOBALAMIN
  5. COQ10 [Concomitant]
     Active Substance: UBIDECARENONE
  6. FLAXSEED [Concomitant]
     Active Substance: FLAX SEED
  7. SIMVASTATIN. [Concomitant]
     Active Substance: SIMVASTATIN
  8. COPAXONE [Suspect]
     Active Substance: GLATIRAMER ACETATE
     Route: 058
     Dates: start: 20141104
  9. AMILORIDE [Concomitant]
     Active Substance: AMILORIDE
  10. FISH OIL [Concomitant]
     Active Substance: FISH OIL
  11. TAMSULOSIN [Concomitant]
     Active Substance: TAMSULOSIN
  12. VITAMIN D [Concomitant]
     Active Substance: CHOLECALCIFEROL

REACTIONS (1)
  - Urinary tract infection [Recovered/Resolved]
